FAERS Safety Report 13163982 (Version 1)
Quarter: 2017Q1

REPORT INFORMATION
  Report Type: Spontaneous
  Country: US (occurrence: US)
  Receive Date: 20170130
  Receipt Date: 20170130
  Transmission Date: 20170428
  Serious: Yes (Hospitalization, Other)
  Sender: FDA-Public Use
  Company Number: US-ASTELLAS-2017US003092

PATIENT
  Age: 10 Year
  Sex: Female

DRUGS (3)
  1. TACROLIMUS. [Suspect]
     Active Substance: TACROLIMUS
     Indication: HEART TRANSPLANT
     Dosage: UNK UNK, UNKNOWN FREQ.
     Route: 065
  2. THYMOGLOBULIN [Concomitant]
     Active Substance: LAPINE T-LYMPHOCYTE IMMUNE GLOBULIN
     Indication: IMMUNE TOLERANCE INDUCTION
     Dosage: UNK UNK, UNKNOWN FREQ.
     Route: 065
  3. MYCOPHENOLATE MOFETIL. [Suspect]
     Active Substance: MYCOPHENOLATE MOFETIL
     Indication: HEART TRANSPLANT
     Dosage: UNK UNK, UNKNOWN FREQ.
     Route: 065

REACTIONS (12)
  - Autoimmune disorder [Recovering/Resolving]
  - Renal injury [Unknown]
  - Anuria [Unknown]
  - Lung disorder [Unknown]
  - Pancreatitis [Unknown]
  - Oral herpes [Unknown]
  - Respiratory failure [Unknown]
  - Drug intolerance [Recovered/Resolved]
  - Alopecia [Recovering/Resolving]
  - Autoimmune hepatitis [Recovered/Resolved]
  - Pleural effusion [Unknown]
  - Lung infection [Unknown]
